FAERS Safety Report 23946844 (Version 1)
Quarter: 2024Q2

REPORT INFORMATION
  Report Type: Spontaneous
  Country: US (occurrence: None)
  Receive Date: 20240606
  Receipt Date: 20240606
  Transmission Date: 20240715
  Serious: Yes (Hospitalization)
  Sender: FDA-Public Use
  Company Number: None

PATIENT
  Age: 77 Year
  Sex: Male

DRUGS (1)
  1. REPATHA [Suspect]
     Active Substance: EVOLOCUMAB
     Dosage: OTHER FREQUENCY : EVERY 14 DAYS;?
     Dates: start: 20210831

REACTIONS (1)
  - Stent placement [None]

NARRATIVE: CASE EVENT DATE: 20240403
